FAERS Safety Report 5430090-9 (Version None)
Quarter: 2007Q3

REPORT INFORMATION
  Report Type: 
  Country: None (occurrence: None)
  Receive Date: 20070829
  Receipt Date: 20070819
  Transmission Date: 20080115
  Serious: Yes (Hospitalization, Other)
  Sender: FDA-Public Use
  Company Number: IL-ABBOTT-07P-082-0378282-00

PATIENT
  Sex: Female
  Weight: 62 kg

DRUGS (1)
  1. KALETRA [Suspect]
     Indication: HIV INFECTION
     Route: 048
     Dates: start: 20050712

REACTIONS (4)
  - CERVICAL DYSPLASIA [None]
  - CERVICITIS [None]
  - ENDOMETRIAL HYPERPLASIA [None]
  - METAPLASIA [None]
